FAERS Safety Report 5632793-X (Version None)
Quarter: 2008Q1

REPORT INFORMATION
  Report Type: 
  Country: None (occurrence: None)
  Receive Date: 20080221
  Receipt Date: 20080211
  Transmission Date: 20080703
  Serious: Yes (Hospitalization)
  Sender: FDA-Public Use
  Company Number: DE-BAYER-DE-2007-030433

PATIENT
  Age: 45 Year
  Sex: Female

DRUGS (3)
  1. BETAFERON [Suspect]
     Indication: MULTIPLE SCLEROSIS
     Route: 058
     Dates: start: 20000301
  2. FOLIC ACID [Concomitant]
     Indication: FOLATE DEFICIENCY
     Dosage: TOTAL DAILY DOSE: 10 MG
  3. TALVOSILEN FORTE [Concomitant]
     Indication: HEADACHE

REACTIONS (4)
  - IMPAIRED HEALING [None]
  - INJECTION SITE NECROSIS [None]
  - INJECTION SITE SCAB [None]
  - INJECTION SITE ULCER [None]
